FAERS Safety Report 6858154-3 (Version None)
Quarter: 2010Q3

REPORT INFORMATION
  Report Type: 
  Country: None (occurrence: None)
  Receive Date: 20100719
  Receipt Date: 20080203
  Transmission Date: 20110219
  Serious: No
  Sender: FDA-Public Use
  Company Number: US-PFIZER INC-2008012391

PATIENT
  Sex: Female
  Weight: 67.1 kg

DRUGS (3)
  1. CHANTIX [Suspect]
     Indication: SMOKING CESSATION THERAPY
     Dates: start: 20080201
  2. ESTRADIOL [Concomitant]
     Indication: HYSTERECTOMY
  3. TRAMADOL [Concomitant]
     Indication: BACK INJURY

REACTIONS (2)
  - RASH [None]
  - SKIN DISORDER [None]
